FAERS Safety Report 22393363 (Version 18)
Quarter: 2025Q1

REPORT INFORMATION
  Report Type: Spontaneous
  Country: US (occurrence: US)
  Receive Date: 20230601
  Receipt Date: 20250227
  Transmission Date: 20250409
  Serious: Yes (Other)
  Sender: PFIZER
  Company Number: US-PFIZER INC-PV202300094389

PATIENT
  Age: 73 Year
  Sex: Female

DRUGS (15)
  1. SOMAVERT [Suspect]
     Active Substance: PEGVISOMANT
     Indication: Acromegaly
     Dosage: CONTINUE AFTER LOADING DOSE DELIVERED IN OFFICE/INJECT 1ML UNDER SKIN (SUBCUTANEOUS) ONCE DAILY
     Route: 058
     Dates: start: 20230427
  2. SOMAVERT [Suspect]
     Active Substance: PEGVISOMANT
     Indication: Gigantism
     Dosage: 15MG KIT INJECT 1ML UNDER THE SKIN ONCE DAILY
     Route: 058
     Dates: start: 20241205
  3. LANREOTIDE [Concomitant]
     Active Substance: LANREOTIDE
  4. PREDNISONE [Concomitant]
     Active Substance: PREDNISONE
  5. GABAPENTIN [Concomitant]
     Active Substance: GABAPENTIN
  6. FUROSEMIDE [Concomitant]
     Active Substance: FUROSEMIDE
  7. ESCITALOPRAM [Concomitant]
     Active Substance: ESCITALOPRAM OXALATE
  8. PREDNISONE [Concomitant]
     Active Substance: PREDNISONE
  9. AMLODIPINE [Concomitant]
     Active Substance: AMLODIPINE BESYLATE
  10. CHLORIDE ION [Concomitant]
     Active Substance: CHLORIDE ION
  11. LOSARTAN [Concomitant]
     Active Substance: LOSARTAN
  12. METOPROLOL SUCCINATE [Concomitant]
     Active Substance: METOPROLOL SUCCINATE
  13. ATORVASTATIN [Concomitant]
     Active Substance: ATORVASTATIN
  14. CARVEDILOL [Concomitant]
     Active Substance: CARVEDILOL
  15. LOSARTAN POTASSIUM [Concomitant]
     Active Substance: LOSARTAN POTASSIUM

REACTIONS (12)
  - Blood pressure increased [Not Recovered/Not Resolved]
  - Fatigue [Not Recovered/Not Resolved]
  - Neck pain [Unknown]
  - Arthralgia [Unknown]
  - Injection site bruising [Not Recovered/Not Resolved]
  - Headache [Not Recovered/Not Resolved]
  - Chest pain [Not Recovered/Not Resolved]
  - Weight increased [Not Recovered/Not Resolved]
  - Asthenia [Unknown]
  - Fat tissue increased [Not Recovered/Not Resolved]
  - Dizziness [Not Recovered/Not Resolved]
  - Product dose omission issue [Unknown]

NARRATIVE: CASE EVENT DATE: 20230101
